FAERS Safety Report 25454496 (Version 1)
Quarter: 2025Q2

REPORT INFORMATION
  Report Type: Spontaneous
  Country: ES (occurrence: ES)
  Receive Date: 20250619
  Receipt Date: 20250619
  Transmission Date: 20250717
  Serious: Yes (Other)
  Sender: CELLTRION
  Company Number: ES-CELLTRION INC.-2023ES015754

PATIENT

DRUGS (4)
  1. ADALIMUMAB [Suspect]
     Active Substance: ADALIMUMAB
     Indication: Eosinophilic colitis
     Route: 065
  2. ADALIMUMAB [Suspect]
     Active Substance: ADALIMUMAB
     Indication: Crohn^s disease
  3. INFLIXIMAB [Suspect]
     Active Substance: INFLIXIMAB
     Indication: Product used for unknown indication
     Route: 065
  4. HUMIRA [Suspect]
     Active Substance: ADALIMUMAB
     Indication: Crohn^s disease
     Route: 065

REACTIONS (3)
  - Paradoxical psoriasis [Recovered/Resolved]
  - Psoriasis [Recovered/Resolved]
  - Off label use [Unknown]
